FAERS Safety Report 6521422-9 (Version None)
Quarter: 2009Q4

REPORT INFORMATION
  Report Type: 
  Country: None (occurrence: None)
  Receive Date: 20091230
  Receipt Date: 20091221
  Transmission Date: 20100525
  Serious: Yes (Other)
  Sender: FDA-Public Use
  Company Number: GB-ASTRAZENECA-2009SE22470

PATIENT
  Age: 79 Year
  Sex: Female

DRUGS (8)
  1. SYMBICORT [Suspect]
     Indication: CHRONIC OBSTRUCTIVE PULMONARY DISEASE
     Dosage: 200/6 UG DAILY
     Route: 055
     Dates: start: 20090408, end: 20090408
  2. LEVOTHYROXINE SODIUM [Concomitant]
     Indication: HYPOTHYROIDISM
     Dosage: 100 DAILY
     Route: 048
     Dates: start: 20080403
  3. ALBUTEROL [Concomitant]
     Indication: DYSPNOEA
     Route: 055
     Dates: start: 20080325
  4. AMLODIPINE [Concomitant]
     Indication: HYPERTENSION
     Route: 048
     Dates: start: 20090812
  5. CO-DYDRAMOL [Concomitant]
     Indication: BACK PAIN
     Dosage: 10 + 500 DAILY
     Route: 048
     Dates: start: 20090102
  6. METOPHAN [Concomitant]
     Indication: BACK PAIN
     Route: 048
     Dates: start: 20090313
  7. PIROXICAM [Concomitant]
     Route: 048
     Dates: start: 20090319
  8. DICYCLOVERINE HCL [Concomitant]
     Route: 048
     Dates: start: 20051114

REACTIONS (2)
  - CHEST DISCOMFORT [None]
  - DYSPNOEA [None]
